FAERS Safety Report 18941948 (Version 6)
Quarter: 2021Q3

REPORT INFORMATION
  Report Type: Spontaneous
  Country: US (occurrence: US)
  Receive Date: 20210225
  Receipt Date: 20210811
  Transmission Date: 20211014
  Serious: Yes (Other)
  Sender: FDA-Public Use
  Company Number: US-BAYER-2021-079073

PATIENT
  Age: 61 Year
  Sex: Male

DRUGS (8)
  1. KOVALTRY [Suspect]
     Active Substance: ANTIHEMOPHILIC FACTOR, HUMAN RECOMBINANT
     Dosage: TOOK ONE DOSE FOR THE TWISTED HIS LEFT WRIST
     Dates: start: 20210203
  2. KOVALTRY [Suspect]
     Active Substance: ANTIHEMOPHILIC FACTOR, HUMAN RECOMBINANT
     Dosage: USED 1 DOSE
     Dates: start: 20210215
  3. KOVALTRY [Suspect]
     Active Substance: ANTIHEMOPHILIC FACTOR, HUMAN RECOMBINANT
     Dosage: 1 DF, ONCE; FOR LEFT ELBOW BLEED
     Route: 042
     Dates: start: 202108
  4. KOVALTRY [Suspect]
     Active Substance: ANTIHEMOPHILIC FACTOR, HUMAN RECOMBINANT
     Dosage: 1 DF, ONCE PROPHY DOSE FOR LEFT ELBOW BLEED
     Dates: start: 20210510
  5. KOVALTRY [Suspect]
     Active Substance: ANTIHEMOPHILIC FACTOR, HUMAN RECOMBINANT
     Dosage: 1 DF, ONCE; PRIOR TO PROCEDURE
     Route: 042
     Dates: start: 20210315, end: 20210315
  6. KOVALTRY [Suspect]
     Active Substance: ANTIHEMOPHILIC FACTOR, HUMAN RECOMBINANT
     Dosage: 7700 U
     Route: 042
  7. KOVALTRY [Suspect]
     Active Substance: ANTIHEMOPHILIC FACTOR, HUMAN RECOMBINANT
     Dosage: TOOK ONE DOSE FOR THE TWISTED HIS LEFT WRIST
     Dates: start: 20210129
  8. KOVALTRY [Suspect]
     Active Substance: ANTIHEMOPHILIC FACTOR, HUMAN RECOMBINANT
     Dosage: 1 DF, ONCE; INFUSED 1 DOSE THE DAY AFTER PROCEDURE
     Route: 042
     Dates: start: 20210316, end: 20210316

REACTIONS (7)
  - Arthritis [None]
  - Joint injury [None]
  - Haemarthrosis [Recovered/Resolved]
  - Haemarthrosis [Recovered/Resolved]
  - Acrochordon excision [None]
  - Haemorrhage [None]
  - Haemorrhage [Recovered/Resolved]

NARRATIVE: CASE EVENT DATE: 20210129
